FAERS Safety Report 9408453 (Version 2)
Quarter: 2013Q3

REPORT INFORMATION
  Report Type: Spontaneous
  Country: US (occurrence: None)
  Receive Date: 20130716
  Receipt Date: 20130724
  Transmission Date: 20140515
  Serious: Yes (Death, Life-Threatening, Hospitalization)
  Sender: FDA-Public Use
  Company Number: 2013-2907

PATIENT
  Age: 74 Year
  Sex: Male

DRUGS (9)
  1. SOMATULINE DEPOT [Suspect]
     Indication: ACROMEGALY
     Dosage: 120 MG (120 MG, 1 IN 28 D), SC
     Route: 058
     Dates: start: 20120709, end: 20130511
  2. HUMULIN (INSULIN HUMAN) [Concomitant]
  3. TESTOSTERONE (TESTOSTERONE) [Concomitant]
  4. TENORMIN (ATENOLOL) [Concomitant]
  5. CELEBREX (CELECOXIB) [Concomitant]
  6. CORTEF (HYDROCORTISONE) [Concomitant]
  7. DIOVAN (VALSARTAN) [Concomitant]
  8. ZYRTEC (CETIRIZINE HYDROCHLORIDE) [Concomitant]
  9. SPIRIVA (TIOTROPIUM BROMIDE) [Concomitant]

REACTIONS (18)
  - Dyspnoea [None]
  - Asthenia [None]
  - Cardio-respiratory arrest [None]
  - Acute respiratory failure [None]
  - Bronchitis [None]
  - Fall [None]
  - Head injury [None]
  - Joint injury [None]
  - Balance disorder [None]
  - Blood pressure systolic increased [None]
  - Body temperature increased [None]
  - Excoriation [None]
  - Blood sodium decreased [None]
  - Haemoglobin decreased [None]
  - Haematocrit decreased [None]
  - Osteoarthritis [None]
  - Aspiration [None]
  - Staphylococcal infection [None]
